FAERS Safety Report 7361864-5 (Version None)
Quarter: 2011Q1

REPORT INFORMATION
  Report Type: 
  Country: None (occurrence: None)
  Receive Date: 20110318
  Receipt Date: 20100831
  Transmission Date: 20110831
  Serious: Yes (Hospitalization, Other)
  Sender: FDA-Public Use
  Company Number: US-BAYER-201028753NA

PATIENT
  Sex: Female
  Weight: 73 kg

DRUGS (11)
  1. YASMIN [Suspect]
     Indication: CONTRACEPTION
     Route: 048
     Dates: start: 20050401, end: 20061001
  2. MICROGESTIN FE 1.5/30 [Concomitant]
     Indication: MENOMETRORRHAGIA
     Dosage: UNK
     Dates: start: 20030101, end: 20040701
  3. AVIANE-28 [Concomitant]
     Indication: MENOMETRORRHAGIA
     Dosage: UNK
     Dates: start: 20040701, end: 20041001
  4. OMEPRAZOLE [Concomitant]
     Indication: HAEMORRHAGE PROPHYLAXIS
     Dosage: UNK
     Dates: start: 20080701
  5. MICROGESTIN FE 1.5/30 [Concomitant]
     Indication: CONTRACEPTION
  6. IBUPROFEN [Concomitant]
     Dosage: UNK
     Dates: start: 20070101, end: 20080101
  7. NAPROXEN [Concomitant]
     Dosage: UNK
     Dates: start: 20070101, end: 20080101
  8. AVIANE-28 [Concomitant]
     Indication: CONTRACEPTION
  9. YASMIN [Suspect]
     Indication: MENOMETRORRHAGIA
     Route: 048
     Dates: start: 20061201, end: 20080701
  10. YAZ [Suspect]
     Indication: MENOMETRORRHAGIA
  11. YAZ [Suspect]
     Indication: CONTRACEPTION
     Route: 048
     Dates: start: 20061101, end: 20061101

REACTIONS (2)
  - SPLENIC VEIN THROMBOSIS [None]
  - PORTAL VEIN THROMBOSIS [None]
